FAERS Safety Report 15880751 (Version 4)
Quarter: 2019Q1

REPORT INFORMATION
  Report Type: Spontaneous
  Country: FR (occurrence: FR)
  Receive Date: 20190128
  Receipt Date: 20190313
  Transmission Date: 20190417
  Serious: Yes (Other)
  Sender: FDA-Public Use
  Company Number: FR-MYLANLABS-2019M1006625

PATIENT
  Age: 64 Year
  Sex: Female

DRUGS (16)
  1. ALLOPURINOL. [Suspect]
     Active Substance: ALLOPURINOL
     Indication: HYPERURICAEMIA
     Dosage: INCONNUE
     Route: 048
     Dates: start: 201611
  2. LANTUS [Suspect]
     Active Substance: INSULIN GLARGINE
     Dosage: 16 INTERNATIONAL UNIT, QD
     Route: 057
  3. KARDEGIC [Suspect]
     Active Substance: ASPIRIN DL-LYSINE
     Dosage: 1 DOSAGE FORM, QD
     Route: 048
     Dates: start: 201807
  4. ALLOPURINOL. [Suspect]
     Active Substance: ALLOPURINOL
     Dosage: 100 MILLIGRAM, QD
     Route: 048
  5. HYDROCHLOROTHIAZIDE,IRBESARTAN MYLAN [Suspect]
     Active Substance: HYDROCHLOROTHIAZIDE\IRBESARTAN
     Indication: HYPERTENSION
     Dosage: 300 MILLIGRAM
     Route: 048
     Dates: start: 201611, end: 20180702
  6. VICTOZA [Suspect]
     Active Substance: LIRAGLUTIDE
     Indication: DIABETES MELLITUS
     Dosage: UNK (INCONNUE)
     Route: 058
     Dates: start: 201611
  7. LANTUS [Suspect]
     Active Substance: INSULIN GLARGINE
     Indication: DIABETES MELLITUS
     Dosage: UNK (INCONNUE)
     Route: 058
     Dates: start: 201611
  8. KARDEGIC [Suspect]
     Active Substance: ASPIRIN DL-LYSINE
     Indication: CARDIOVASCULAR EVENT PROPHYLAXIS
     Dosage: 1 DOSAGE FORM, QD
     Route: 048
     Dates: start: 201611, end: 201807
  9. NOVORAPID [Suspect]
     Active Substance: INSULIN ASPART
     Indication: DIABETES MELLITUS
     Dosage: UNK (INCONNUE)
     Route: 058
     Dates: start: 201611
  10. LANTUS [Suspect]
     Active Substance: INSULIN GLARGINE
     Dosage: 16 INTERNATIONAL UNIT, QD
     Route: 058
  11. LIPTRUZET [Concomitant]
     Active Substance: ATORVASTATIN CALCIUM\EZETIMIBE
     Indication: HYPERCHOLESTEROLAEMIA
     Dosage: 1 DOSAGE FORM, QD
     Route: 048
     Dates: start: 201802, end: 20180529
  12. HYDROCHLOROTHIAZIDE,IRBESARTAN MYLAN [Suspect]
     Active Substance: HYDROCHLOROTHIAZIDE\IRBESARTAN
     Dosage: 1 DOSAGE FORM, QD
     Route: 048
  13. IRBESARTAN. [Suspect]
     Active Substance: IRBESARTAN
     Indication: HYPERTENSION
     Dosage: 300 MILLIGRAM, UNK
     Route: 048
     Dates: start: 201611, end: 20180702
  14. VICTOZA [Suspect]
     Active Substance: LIRAGLUTIDE
     Dosage: 1 DOSAGE FORM, QD
     Route: 058
  15. NOVORAPID [Suspect]
     Active Substance: INSULIN ASPART
     Dosage: 12 INTERNATIONAL UNIT, QD
     Route: 058
  16. HYDROCHLOROTHIAZIDE. [Suspect]
     Active Substance: HYDROCHLOROTHIAZIDE
     Indication: HYPERTENSION
     Dosage: 12.5 MILLIGRAM, QD (12.5 MG, QD)
     Route: 048
     Dates: start: 201611, end: 20180702

REACTIONS (3)
  - Urticaria [Not Recovered/Not Resolved]
  - Peripheral swelling [Recovering/Resolving]
  - Swelling face [Recovering/Resolving]

NARRATIVE: CASE EVENT DATE: 20180525
